FAERS Safety Report 20649552 (Version 1)
Quarter: 2022Q1

REPORT INFORMATION
  Report Type: Spontaneous
  Country: US (occurrence: None)
  Receive Date: 20220329
  Receipt Date: 20220329
  Transmission Date: 20220423
  Serious: Yes (Hospitalization)
  Sender: FDA-Public Use
  Company Number: None

PATIENT
  Sex: Female

DRUGS (1)
  1. DAPSONE [Suspect]
     Active Substance: DAPSONE
     Dosage: FREQUENCY : DAILY;?
     Route: 048
     Dates: start: 20160429

REACTIONS (3)
  - Peripheral swelling [None]
  - Blister [None]
  - Neuropathy peripheral [None]
